FAERS Safety Report 11217448 (Version 2)
Quarter: 2015Q3

REPORT INFORMATION
  Report Type: Spontaneous
  Country: US (occurrence: US)
  Receive Date: 20150625
  Receipt Date: 20150819
  Transmission Date: 20151125
  Serious: No
  Sender: FDA-Public Use
  Company Number: US-009507513-1506USA006013

PATIENT
  Age: 24 Year
  Sex: Female
  Weight: 82.54 kg

DRUGS (1)
  1. NEXPLANON [Suspect]
     Active Substance: ETONOGESTREL
     Indication: CONTRACEPTION
     Dosage: UNK
     Route: 059
     Dates: start: 20150529, end: 20150530

REACTIONS (2)
  - Implant site hypersensitivity [Recovered/Resolved]
  - Implant site bruising [Recovering/Resolving]

NARRATIVE: CASE EVENT DATE: 20150529
